FAERS Safety Report 17655491 (Version 1)
Quarter: 2020Q2

REPORT INFORMATION
  Report Type: Spontaneous
  Country: US (occurrence: US)
  Receive Date: 20200409
  Receipt Date: 20200409
  Transmission Date: 20200713
  Serious: No
  Sender: FDA-Public Use
  Company Number: None

PATIENT
  Age: 62 Year
  Sex: Male

DRUGS (1)
  1. GENGRAF [Suspect]
     Active Substance: CYCLOSPORINE
     Route: 048

REACTIONS (5)
  - Inflammation [None]
  - Fatigue [None]
  - Appendix disorder [None]
  - Nausea [None]
  - Chills [None]

NARRATIVE: CASE EVENT DATE: 20200406
